FAERS Safety Report 8473424 (Version 3)
Quarter: 2013Q4

REPORT INFORMATION
  Report Type: Spontaneous
  Country: US (occurrence: None)
  Receive Date: 20120315
  Receipt Date: 20131015
  Transmission Date: 20140711
  Serious: Yes (Death, Hospitalization, Other)
  Sender: FDA-Public Use
  Company Number: QSC-2012-0015

PATIENT
  Age: 56 Year
  Sex: Male

DRUGS (5)
  1. H.P. ACTHAR [Suspect]
     Indication: NEPHROTIC SYNDROME
     Dosage: 80 UNITS, BIW, SUBCUTANEOUS
     Route: 058
     Dates: start: 201111, end: 201202
  2. PROGRAF [Suspect]
     Dosage: 500 MG, BID, ORAL
     Route: 048
     Dates: start: 1999
  3. CELLCEPT [Suspect]
     Route: 048
     Dates: start: 1999
  4. SIMVASTATIN [Concomitant]
  5. LOVAZA [Concomitant]

REACTIONS (8)
  - Asthenia [None]
  - Acute respiratory distress syndrome [None]
  - Pneumonia [None]
  - Skin lesion [None]
  - Incorrect drug administration duration [None]
  - Fungal infection [None]
  - Sensation of heaviness [None]
  - Weight decreased [None]
